FAERS Safety Report 23270124 (Version 1)
Quarter: 2023Q4

REPORT INFORMATION
  Report Type: Spontaneous
  Country: CN (occurrence: CN)
  Receive Date: 20231207
  Receipt Date: 20231207
  Transmission Date: 20240110
  Serious: Yes (Other)
  Sender: FDA-Public Use
  Company Number: None

PATIENT
  Age: 19 Year
  Sex: Female
  Weight: 55 kg

DRUGS (18)
  1. CYCLOPHOSPHAMIDE [Suspect]
     Active Substance: CYCLOPHOSPHAMIDE
     Indication: Chemotherapy
     Dosage: 1.2 G, ONE TIME IN ONE DAY, DILUTED WITH 250ML OF SODIUM CHLORIDE
     Route: 041
     Dates: start: 20231024, end: 20231024
  2. CYCLOPHOSPHAMIDE [Suspect]
     Active Substance: CYCLOPHOSPHAMIDE
     Indication: B-cell type acute leukaemia
     Dosage: 1.2 G, ONE TIME IN ONE DAY, DILUTED WITH 250ML OF SODIUM CHLORIDE
     Route: 041
     Dates: start: 20231031, end: 20231031
  3. CYCLOPHOSPHAMIDE [Suspect]
     Active Substance: CYCLOPHOSPHAMIDE
     Indication: Acute lymphocytic leukaemia
  4. CYCLOPHOSPHAMIDE [Suspect]
     Active Substance: CYCLOPHOSPHAMIDE
     Indication: Isocitrate dehydrogenase gene mutation
  5. SODIUM CHLORIDE [Suspect]
     Active Substance: SODIUM CHLORIDE
     Indication: Medication dilution
     Dosage: 250 ML, ONE TIME IN ONE DAY, USED TO DILUTE 1.2 G OF CYCLOPHOSPHAMIDE
     Route: 041
     Dates: start: 20231024, end: 20231024
  6. SODIUM CHLORIDE [Suspect]
     Active Substance: SODIUM CHLORIDE
     Dosage: 250 ML, ONE TIME IN ONE DAY, USED TO DILUTE 1.2 G OF CYCLOPHOSPHAMIDE
     Route: 041
     Dates: start: 20231031, end: 20231031
  7. SODIUM CHLORIDE [Suspect]
     Active Substance: SODIUM CHLORIDE
     Dosage: 500 ML, ONE TIME IN ONE DAY, USED TO DILUTE 160MG OF CYTARABINE HYDROCHLORIDE
     Route: 041
     Dates: start: 20231024, end: 20231026
  8. SODIUM CHLORIDE [Suspect]
     Active Substance: SODIUM CHLORIDE
     Dosage: 500 ML, ONE TIME IN ONE DAY, USED TO DILUTE 160MG OF CYTARABINE HYDROCHLORIDE
     Route: 041
     Dates: start: 20231031, end: 20231031
  9. SODIUM CHLORIDE [Suspect]
     Active Substance: SODIUM CHLORIDE
     Dosage: 4 ML, ONE TIME IN ONE DAY, USED TO DILUTE 50MG OF CYTARABINE HYDROCHLORIDE
     Route: 037
     Dates: start: 20231024, end: 20231024
  10. SODIUM CHLORIDE [Suspect]
     Active Substance: SODIUM CHLORIDE
     Dosage: 4 ML, ONE TIME IN ONE DAY, USED TO DILUTE 5MG OF DEXAMETHASONE SODIUM PHOSPHATE
     Route: 037
     Dates: start: 20231024, end: 20231024
  11. CYTARABINE HYDROCHLORIDE [Suspect]
     Active Substance: CYTARABINE HYDROCHLORIDE
     Indication: Chemotherapy
     Dosage: 160 MG, ONE TIME IN ONE DAY, DILUTED WITH 500ML OF SODIUM CHLORIDE
     Route: 041
     Dates: start: 20231024, end: 20231026
  12. CYTARABINE HYDROCHLORIDE [Suspect]
     Active Substance: CYTARABINE HYDROCHLORIDE
     Indication: B-cell type acute leukaemia
     Dosage: 160 MG, ONE TIME IN ONE DAY, DILUTED WITH 500ML OF SODIUM CHLORIDE
     Route: 041
     Dates: start: 20231031, end: 20231031
  13. CYTARABINE HYDROCHLORIDE [Suspect]
     Active Substance: CYTARABINE HYDROCHLORIDE
     Indication: Acute lymphocytic leukaemia
     Dosage: 50 MG, ONE TIME IN ONE DAY, DILUTED WITH 4ML OF SODIUM CHLORIDE
     Route: 037
     Dates: start: 20231024, end: 20231024
  14. CYTARABINE HYDROCHLORIDE [Suspect]
     Active Substance: CYTARABINE HYDROCHLORIDE
     Indication: Isocitrate dehydrogenase gene mutation
  15. DEXAMETHASONE SODIUM PHOSPHATE [Suspect]
     Active Substance: DEXAMETHASONE PHOSPHATE\DEXAMETHASONE SODIUM PHOSPHATE
     Indication: Chemotherapy
     Dosage: 5 MG, ONE TIME IN ONE DAY, DILUTED WITH 4ML OF SODIUM CHLORIDE
     Route: 037
     Dates: start: 20231024, end: 20231024
  16. DEXAMETHASONE SODIUM PHOSPHATE [Suspect]
     Active Substance: DEXAMETHASONE PHOSPHATE\DEXAMETHASONE SODIUM PHOSPHATE
     Indication: B-cell type acute leukaemia
  17. DEXAMETHASONE SODIUM PHOSPHATE [Suspect]
     Active Substance: DEXAMETHASONE PHOSPHATE\DEXAMETHASONE SODIUM PHOSPHATE
     Indication: Acute lymphocytic leukaemia
  18. DEXAMETHASONE SODIUM PHOSPHATE [Suspect]
     Active Substance: DEXAMETHASONE PHOSPHATE\DEXAMETHASONE SODIUM PHOSPHATE
     Indication: Isocitrate dehydrogenase gene mutation

REACTIONS (1)
  - Myelosuppression [Unknown]

NARRATIVE: CASE EVENT DATE: 20231103
